FAERS Safety Report 9982066 (Version 2)
Quarter: 2014Q1

REPORT INFORMATION
  Report Type: Report from Study
  Country: US (occurrence: US)
  Receive Date: 20140307
  Receipt Date: 20140307
  Transmission Date: 20141002
  Serious: No
  Sender: FDA-Public Use
  Company Number: US-ABBVIE-13P-163-1146968-00

PATIENT
  Age: 14 Year
  Sex: Male

DRUGS (5)
  1. HUMIRA [Suspect]
     Indication: CROHN^S DISEASE
     Dates: start: 20130828, end: 20130828
  2. HUMIRA [Suspect]
  3. MVI [Concomitant]
     Indication: VITAMIN SUPPLEMENTATION
  4. PREDNISONE [Concomitant]
     Indication: CROHN^S DISEASE
     Dosage: 20MG EVERY MORNING, 10MG EVERY NIGHT
  5. OMEPRAZOLE [Concomitant]
     Indication: PRODUCT USED FOR UNKNOWN INDICATION

REACTIONS (1)
  - Injection site pain [Not Recovered/Not Resolved]
